FAERS Safety Report 6912669-8 (Version None)
Quarter: 2010Q3

REPORT INFORMATION
  Report Type: 
  Country: None (occurrence: None)
  Receive Date: 20100806
  Receipt Date: 20080905
  Transmission Date: 20110219
  Serious: No
  Sender: FDA-Public Use
  Company Number: US-PFIZER INC-2008074753

PATIENT
  Sex: Female
  Weight: 49.09 kg

DRUGS (3)
  1. DETROL LA [Suspect]
     Route: 048
     Dates: start: 20060101
  2. SYNTHROID [Concomitant]
  3. ANTIHYPERTENSIVES [Concomitant]

REACTIONS (1)
  - DRY MOUTH [None]
